FAERS Safety Report 4585605-X (Version None)
Quarter: 2005Q1

REPORT INFORMATION
  Report Type: 
  Country: None (occurrence: None)
  Receive Date: 20050214
  Receipt Date: 20050131
  Transmission Date: 20050727
  Serious: Yes (Hospitalization)
  Sender: FDA-Public Use
  Company Number: 2005024241

PATIENT
  Sex: Male

DRUGS (2)
  1. AMLODIPINE [Suspect]
     Indication: ILL-DEFINED DISORDER
     Dosage: 5 MG, ORAL
     Route: 048
  2. ATORVASTATIN (ATORVASTATIN) [Concomitant]

REACTIONS (1)
  - TRANSIENT ISCHAEMIC ATTACK [None]
